FAERS Safety Report 11503148 (Version 1)
Quarter: 2015Q3

REPORT INFORMATION
  Report Type: Spontaneous
  Country: US (occurrence: US)
  Receive Date: 20150914
  Receipt Date: 20150914
  Transmission Date: 20151125
  Serious: No
  Sender: FDA-Public Use
  Company Number: US-ASTELLAS-2015US030913

PATIENT
  Sex: Male

DRUGS (1)
  1. XTANDI [Suspect]
     Active Substance: ENZALUTAMIDE
     Indication: PRODUCT USED FOR UNKNOWN INDICATION
     Dosage: 4 CAPSULE (40 MG), ONCE DAILY
     Route: 048
     Dates: start: 20150625

REACTIONS (4)
  - Mood altered [Unknown]
  - Pain [Unknown]
  - Fatigue [Unknown]
  - Anger [Unknown]
